FAERS Safety Report 23207444 (Version 1)
Quarter: 2023Q4

REPORT INFORMATION
  Report Type: Spontaneous
  Country: JP (occurrence: JP)
  Receive Date: 20231120
  Receipt Date: 20231120
  Transmission Date: 20240110
  Serious: Yes (Other)
  Sender: FDA-Public Use
  Company Number: JP-NOVOPROD-1139700

PATIENT
  Age: 16 Year

DRUGS (1)
  1. NORDITROPIN [Suspect]
     Active Substance: SOMATROPIN
     Indication: Noonan syndrome
     Dosage: UNK
     Route: 058

REACTIONS (1)
  - Hypertrophic cardiomyopathy [Unknown]
